FAERS Safety Report 13781980 (Version 1)
Quarter: 2017Q3

REPORT INFORMATION
  Report Type: Not Available
  Country: GB (occurrence: GB)
  Receive Date: 20170724
  Receipt Date: 20170724
  Transmission Date: 20171127
  Serious: Yes (Life-Threatening)
  Sender: FDA-Public Use
  Company Number: GB-3M-2017-UK-000031

PATIENT
  Sex: 0

DRUGS (1)
  1. CHLORHEXIDINE GLUCONATE (NON-SPECIFIC) [Suspect]
     Active Substance: CHLORHEXIDINE GLUCONATE
     Route: 065

REACTIONS (1)
  - Cardiac arrest [Unknown]
